FAERS Safety Report 8154926-6 (Version None)
Quarter: 2012Q1

REPORT INFORMATION
  Report Type: 
  Country: None (occurrence: None)
  Receive Date: 20120221
  Receipt Date: 20120216
  Transmission Date: 20120608
  Serious: Yes (Other)
  Sender: FDA-Public Use
  Company Number: PHHY2011VE85273

PATIENT
  Sex: Female

DRUGS (3)
  1. ZOLEDRONOC ACID [Suspect]
     Indication: OSTEOPOROSIS
     Dosage: 5 MG/ ONCE A YEAR
     Route: 042
     Dates: start: 20101201
  2. CALCIUM CARBONATE [Concomitant]
     Indication: BONE DISORDER
     Dosage: 1 DF, MONTHLY
     Route: 048
  3. ZOLEDRONOC ACID [Suspect]
     Dosage: 5 MG, UNK
     Route: 042
     Dates: start: 20110101

REACTIONS (3)
  - PAIN IN EXTREMITY [None]
  - FALL [None]
  - BONE PAIN [None]
